FAERS Safety Report 4863990-9 (Version None)
Quarter: 2005Q4

REPORT INFORMATION
  Report Type: 
  Country: None (occurrence: None)
  Receive Date: 20051222
  Receipt Date: 20050516
  Transmission Date: 20060501
  Serious: Yes (Hospitalization, Disabling, Other)
  Sender: FDA-Public Use
  Company Number: US-ABBOTT-05P-163-0300657-00

PATIENT
  Sex: Male

DRUGS (10)
  1. OMNICEF [Suspect]
     Indication: DRUG USE FOR UNKNOWN INDICATION
     Dates: start: 20050328
  2. CELECOXIB [Suspect]
     Indication: DRUG USE FOR UNKNOWN INDICATION
     Dates: start: 20040801
  3. BENZONATATE [Suspect]
     Indication: DRUG USE FOR UNKNOWN INDICATION
     Dates: start: 20050328
  4. FLUTICASONE PROPIONATE [Suspect]
     Indication: DRUG USE FOR UNKNOWN INDICATION
     Dates: start: 20050328
  5. ALLEGRA [Suspect]
     Indication: DRUG USE FOR UNKNOWN INDICATION
     Dosage: 12 HOUR
     Dates: start: 20050328
  6. UNKNOWN [Suspect]
     Indication: DRUG USE FOR UNKNOWN INDICATION
  7. HYDROCHLOROTHIAZIDE/OLMESARTAN [Concomitant]
     Indication: DRUG USE FOR UNKNOWN INDICATION
  8. SIMVASTATIN [Concomitant]
     Indication: DRUG USE FOR UNKNOWN INDICATION
  9. AMOXICILLIN [Concomitant]
     Indication: DRUG USE FOR UNKNOWN INDICATION
  10. TUSSIN DM [Concomitant]
     Indication: DRUG USE FOR UNKNOWN INDICATION

REACTIONS (12)
  - ARTERIOGRAM CAROTID ABNORMAL [None]
  - BLINDNESS [None]
  - BLOOD CHOLESTEROL INCREASED [None]
  - BLOOD PRESSURE INCREASED [None]
  - CEREBROVASCULAR ACCIDENT [None]
  - CHRONIC SINUSITIS [None]
  - CORONARY ARTERY OCCLUSION [None]
  - HEADACHE [None]
  - LOCKED-IN SYNDROME [None]
  - NECK PAIN [None]
  - NUCLEAR MAGNETIC RESONANCE IMAGING BRAIN ABNORMAL [None]
  - WEIGHT INCREASED [None]
